FAERS Safety Report 18478050 (Version 1)
Quarter: 2020Q4

REPORT INFORMATION
  Report Type: Spontaneous
  Country: CN (occurrence: CN)
  Receive Date: 20201108
  Receipt Date: 20201108
  Transmission Date: 20210114
  Serious: Yes (Other)
  Sender: FDA-Public Use
  Company Number: CN-ROCHE-2708347

PATIENT
  Age: 45 Year
  Sex: Female

DRUGS (8)
  1. DOCETAXEL. [Concomitant]
     Active Substance: DOCETAXEL
     Dates: start: 20150315
  2. PIRARUBICIN [Concomitant]
     Active Substance: PIRARUBICIN
     Dates: start: 20150315
  3. DOCETAXEL. [Concomitant]
     Active Substance: DOCETAXEL
     Dates: start: 20190927
  4. DOCETAXEL. [Concomitant]
     Active Substance: DOCETAXEL
     Dates: start: 20190909
  5. CISPLATIN. [Concomitant]
     Active Substance: CISPLATIN
     Dates: start: 20190909
  6. HERCEPTIN [Suspect]
     Active Substance: TRASTUZUMAB
     Indication: INVASIVE DUCTAL BREAST CARCINOMA
     Route: 065
     Dates: start: 20150101
  7. CISPLATIN. [Concomitant]
     Active Substance: CISPLATIN
     Dates: start: 20190927
  8. CYCLOPHOSPHAMIDE. [Concomitant]
     Active Substance: CYCLOPHOSPHAMIDE
     Dates: start: 20150315

REACTIONS (2)
  - Myalgia [Unknown]
  - Myelosuppression [Unknown]

NARRATIVE: CASE EVENT DATE: 2019
